FAERS Safety Report 7419048-8 (Version None)
Quarter: 2011Q2

REPORT INFORMATION
  Report Type: 
  Country: None (occurrence: None)
  Receive Date: 20110415
  Receipt Date: 20110405
  Transmission Date: 20111010
  Serious: Yes (Other)
  Sender: FDA-Public Use
  Company Number: PHHY2011US28098

PATIENT
  Sex: Female
  Weight: 57.596 kg

DRUGS (5)
  1. ESTROGEN NOS [Concomitant]
     Dosage: DAILY
     Route: 061
  2. PROGESTERONE [Concomitant]
     Dosage: DAILY
     Route: 061
  3. VALTREX [Concomitant]
     Route: 048
  4. RECLAST [Suspect]
     Indication: OSTEOPENIA
     Dosage: 5 MG, (ANNUALLY FOR 2 YEARS)
     Route: 042
     Dates: start: 20091201
  5. TESTOSTERONE [Concomitant]
     Dosage: DAILY
     Route: 061

REACTIONS (1)
  - THYROID NEOPLASM [None]
